FAERS Safety Report 22646490 (Version 1)
Quarter: 2023Q2

REPORT INFORMATION
  Report Type: Spontaneous
  Country: US (occurrence: US)
  Receive Date: 20230627
  Receipt Date: 20230627
  Transmission Date: 20230722
  Serious: Yes (Other)
  Sender: FDA-Public Use
  Company Number: US-AMGEN-USASP2023110292

PATIENT
  Age: 69 Year
  Sex: Female

DRUGS (8)
  1. PROLIA [Suspect]
     Active Substance: DENOSUMAB
     Indication: Osteoporosis
     Dosage: 60 MILLIGRAM, Q6MO
     Route: 058
     Dates: start: 2021
  2. FUROSEMIDE [Concomitant]
     Active Substance: FUROSEMIDE
     Dosage: 20 MILLIGRAM, QD
  3. VITAMIN D [Concomitant]
     Active Substance: VITAMIN D NOS
     Indication: Functional gastrointestinal disorder
     Dosage: 200 INTERNATIONAL UNIT, QD
  4. METAMUCIL [Concomitant]
     Active Substance: PLANTAGO SEED
  5. MIRALAX [Concomitant]
     Active Substance: POLYETHYLENE GLYCOL 3350
  6. TUMS [Concomitant]
     Active Substance: CALCIUM CARBONATE
     Dosage: AS NEEDED
  7. CALCIUM [Concomitant]
     Active Substance: CALCIUM
     Indication: Abdominal discomfort
     Dosage: 500 MILLIGRAM
  8. ESTRACE [Concomitant]
     Active Substance: ESTRADIOL
     Dosage: 0.01% VAGINAL 3 TIMES A WEEK

REACTIONS (2)
  - Deep vein thrombosis [Not Recovered/Not Resolved]
  - Phlebitis [Not Recovered/Not Resolved]

NARRATIVE: CASE EVENT DATE: 20230620
